FAERS Safety Report 11909958 (Version 1)
Quarter: 2016Q1

REPORT INFORMATION
  Report Type: Spontaneous
  Country: US (occurrence: None)
  Receive Date: 20160111
  Receipt Date: 20160111
  Transmission Date: 20160526
  Serious: No
  Sender: FDA-Public Use
  Company Number: None

PATIENT
  Age: 61 Year
  Sex: Female
  Weight: 60.78 kg

DRUGS (7)
  1. ANTIHISTAMINE [Concomitant]
     Active Substance: UNSPECIFIED INGREDIENT
  2. NICOTINE GUM [Concomitant]
     Active Substance: NICOTINE
  3. EMERGENCE-C SUPPLEMENT [Concomitant]
  4. BUPROPION HCL ER 150 MG ACTAVIS LABORATORIES [Suspect]
     Active Substance: BUPROPION HYDROCHLORIDE
     Indication: SMOKING CESSATION THERAPY
     Dosage: 1 PILL
     Dates: start: 20151217, end: 20160108
  5. BUPROPION. [Concomitant]
     Active Substance: BUPROPION
  6. ALIVE WOMENS CHEWABLE GUMMY VITAMINS [Concomitant]
  7. EMERGENCE-Z WITH MELATONIN [Concomitant]

REACTIONS (5)
  - Eye pain [None]
  - Pruritus [None]
  - Urticaria [None]
  - Burning sensation [None]
  - Eye irritation [None]

NARRATIVE: CASE EVENT DATE: 20160108
